FAERS Safety Report 8794878 (Version 2)
Quarter: 2015Q1

REPORT INFORMATION
  Report Type: Report from Study
  Country: US (occurrence: US)
  Receive Date: 20120918
  Receipt Date: 20150312
  Transmission Date: 20150721
  Serious: Yes (Death)
  Sender: FDA-Public Use
  Company Number: US-ROCHE-1104227

PATIENT
  Sex: Female

DRUGS (13)
  1. VITAMIN B12 [Concomitant]
     Active Substance: CYANOCOBALAMIN
     Route: 030
  2. TAXOL [Concomitant]
     Active Substance: PACLITAXEL
     Route: 065
  3. TAXOL [Concomitant]
     Active Substance: PACLITAXEL
     Route: 065
  4. DECADRON [Concomitant]
     Active Substance: DEXAMETHASONE
     Route: 065
  5. AVASTIN [Suspect]
     Active Substance: BEVACIZUMAB
     Indication: METASTASES TO LYMPH NODES
     Route: 042
     Dates: start: 20050909
  6. TAXOTERE [Concomitant]
     Active Substance: DOCETAXEL
     Route: 065
  7. ALOXI [Concomitant]
     Active Substance: PALONOSETRON HYDROCHLORIDE
     Route: 042
  8. TAXOTERE [Concomitant]
     Active Substance: DOCETAXEL
     Route: 065
  9. CARBOPLATIN. [Concomitant]
     Active Substance: CARBOPLATIN
     Route: 042
  10. TEQUIN [Concomitant]
     Active Substance: GATIFLOXACIN
     Route: 042
  11. ALIMTA [Concomitant]
     Active Substance: PEMETREXED DISODIUM
     Route: 042
  12. NEULASTA [Concomitant]
     Active Substance: PEGFILGRASTIM
     Route: 058
  13. BENADRYL [Concomitant]
     Active Substance: DIPHENHYDRAMINE HYDROCHLORIDE
     Route: 065

REACTIONS (4)
  - Dysphonia [Unknown]
  - Memory impairment [Unknown]
  - Night sweats [Unknown]
  - Death [Fatal]
